FAERS Safety Report 5324752-1 (Version None)
Quarter: 2007Q2

REPORT INFORMATION
  Report Type: 
  Country: None (occurrence: None)
  Receive Date: 20070515
  Receipt Date: 20070507
  Transmission Date: 20071010
  Serious: Yes (Hospitalization)
  Sender: FDA-Public Use
  Company Number: PHBS2007JP07963

PATIENT
  Age: 70 Year
  Sex: Male

DRUGS (7)
  1. COMTAN [Suspect]
     Indication: PARKINSON'S DISEASE
     Dosage: 400 MG/D
     Route: 048
     Dates: start: 20070419, end: 20070422
  2. HYPEN [Suspect]
     Dosage: 400 MG/D
     Route: 048
     Dates: start: 20070314, end: 20070422
  3. MARZULENE S [Concomitant]
     Route: 048
     Dates: start: 20070314, end: 20070422
  4. NEO DOPASTON [Concomitant]
     Dosage: 500 MG/D
     Route: 048
     Dates: start: 19980101, end: 20070422
  5. CABASER [Concomitant]
     Dosage: 5 MG/D
     Route: 048
     Dates: start: 19980101, end: 20070422
  6. CYANOCOBALAMIN [Concomitant]
     Route: 048
  7. SYMMETREL [Concomitant]
     Route: 048

REACTIONS (5)
  - GASTRITIS HAEMORRHAGIC [None]
  - HAEMATEMESIS [None]
  - OESOPHAGITIS HAEMORRHAGIC [None]
  - PYREXIA [None]
  - STOMACH DISCOMFORT [None]
